FAERS Safety Report 17231904 (Version 4)
Quarter: 2020Q2

REPORT INFORMATION
  Report Type: Spontaneous
  Country: US (occurrence: US)
  Receive Date: 20200103
  Receipt Date: 20200511
  Transmission Date: 20200713
  Serious: Yes (Other)
  Sender: FDA-Public Use
  Company Number: US-PFIZER INC-2019563299

PATIENT
  Age: 31 Year
  Sex: Female

DRUGS (40)
  1. DOCETAXEL. [Suspect]
     Active Substance: DOCETAXEL
     Indication: INVASIVE DUCTAL BREAST CARCINOMA
     Dosage: 115/5 MG, SINGLE
     Dates: start: 20120807, end: 20120807
  2. PARAPLATIN [Concomitant]
     Active Substance: CARBOPLATIN
     Indication: INVASIVE DUCTAL BREAST CARCINOMA
     Dosage: 590 MG, SINGLE
     Dates: start: 20120807, end: 20120807
  3. PARAPLATIN [Concomitant]
     Active Substance: CARBOPLATIN
     Dosage: 590 MG, SINGLE
     Dates: start: 20121030, end: 20121030
  4. PARAPLATIN [Concomitant]
     Active Substance: CARBOPLATIN
     Dosage: 590 MG, SINGLE
     Dates: start: 20121120, end: 20121120
  5. OMEPRAZOLE. [Concomitant]
     Active Substance: OMEPRAZOLE
     Dosage: 20 MG, UNK
     Dates: start: 20160225
  6. PREDNISONE. [Concomitant]
     Active Substance: PREDNISONE
     Dosage: 5 MG, UNK
     Dates: start: 20150422, end: 20151103
  7. TRI LO ESTARYLLA [Concomitant]
     Dosage: UNK
     Dates: start: 20160120, end: 20170113
  8. HYDROCODONE BIT/ACETAMINOPHEN [Concomitant]
     Dosage: UNK (7.5 TO 325)
     Dates: start: 20120620, end: 20190424
  9. DOCETAXEL. [Suspect]
     Active Substance: DOCETAXEL
     Dosage: 115/5 MG, SINGLE
     Dates: start: 20120828, end: 20120828
  10. HERCEPTIN [Concomitant]
     Active Substance: TRASTUZUMAB
     Dosage: UNK
     Dates: end: 201308
  11. ATORVASTATIN CALCIUM. [Concomitant]
     Active Substance: ATORVASTATIN CALCIUM
     Dosage: 10 MG, UNK
     Dates: start: 20160117, end: 20190626
  12. BUSPIRONE HCL [Concomitant]
     Active Substance: BUSPIRONE HYDROCHLORIDE
     Dosage: 10 MG, UNK
     Dates: start: 20171213, end: 20191111
  13. LORATADINE. [Concomitant]
     Active Substance: LORATADINE
     Dosage: 10 MG, UNK
     Dates: start: 20080513
  14. PRENATAL PLUS VITAMIN [Concomitant]
     Dosage: UNK
     Dates: start: 20071219, end: 20180913
  15. FLUOXETINE HCL [Concomitant]
     Active Substance: FLUOXETINE HYDROCHLORIDE
     Dosage: 20 MG, UNK
     Dates: start: 20140718, end: 20161231
  16. METHIMAZOLE. [Concomitant]
     Active Substance: METHIMAZOLE
     Dosage: 10 MG, UNK
     Dates: start: 20140718, end: 20191210
  17. DOCETAXEL. [Suspect]
     Active Substance: DOCETAXEL
     Dosage: 115 MG, SINGLE
     Dates: start: 20121120, end: 20121120
  18. CYANOCOBALAMIN. [Concomitant]
     Active Substance: CYANOCOBALAMIN
     Dosage: 1000 UG, UNK
     Dates: start: 20180828
  19. PROPRANOLOL HCL [Concomitant]
     Active Substance: PROPRANOLOL HYDROCHLORIDE
     Dosage: 20 MG, UNK
     Dates: start: 20100721, end: 20170915
  20. DOCETAXEL. [Suspect]
     Active Substance: DOCETAXEL
     Dosage: UNK
     Dates: start: 20120807, end: 20121120
  21. PARAPLATIN [Concomitant]
     Active Substance: CARBOPLATIN
     Dosage: 590 MG, SINGLE
     Dates: start: 20120918, end: 20120918
  22. HERCEPTIN [Concomitant]
     Active Substance: TRASTUZUMAB
     Indication: INVASIVE DUCTAL BREAST CARCINOMA
     Dosage: UNK, CYCLIC (6 CYCLES)
  23. CITALOPRAM HYDROBROMIDE. [Concomitant]
     Active Substance: CITALOPRAM HYDROBROMIDE
     Dosage: 40 MG, UNK
     Dates: start: 20100113, end: 20140310
  24. NAPROXEN. [Concomitant]
     Active Substance: NAPROXEN
     Dosage: 500 MG, UNK
     Dates: start: 20120801
  25. DOCETAXEL. [Suspect]
     Active Substance: DOCETAXEL
     Dosage: 115 MG, SINGLE
     Dates: start: 20121009, end: 20121009
  26. VENLAFAXINE HCL [Concomitant]
     Active Substance: VENLAFAXINE HYDROCHLORIDE
     Dosage: 75 MG, UNK
     Dates: start: 20170307, end: 20181031
  27. IBUPROFEN. [Concomitant]
     Active Substance: IBUPROFEN
     Dosage: UNK (400-800 MG)
     Dates: start: 20040424
  28. DEXAMETHASONE. [Concomitant]
     Active Substance: DEXAMETHASONE
     Dosage: 4 MG, UNK
  29. METHIMAZOLE. [Concomitant]
     Active Substance: METHIMAZOLE
     Indication: HORMONE THERAPY
     Dosage: UNK
     Dates: start: 20141001
  30. PARAPLATIN [Concomitant]
     Active Substance: CARBOPLATIN
     Dosage: 590 MG, SINGLE
     Dates: start: 20121009, end: 20121009
  31. ACETAMINOPHEN. [Concomitant]
     Active Substance: ACETAMINOPHEN
     Dosage: 325 MG, UNK
     Dates: start: 20080913, end: 20181103
  32. TRAMADOL HCL [Concomitant]
     Active Substance: TRAMADOL HYDROCHLORIDE
     Dosage: 50 MG, UNK
     Dates: start: 20120507, end: 20130731
  33. AZITHROMYCIN ANHYDROUS. [Concomitant]
     Active Substance: AZITHROMYCIN ANHYDROUS
     Dosage: UNK (250-500 MG)
     Dates: start: 20090323, end: 20170915
  34. DOCETAXEL. [Suspect]
     Active Substance: DOCETAXEL
     Dosage: 115/5 MG, SINGLE
     Dates: start: 20120918, end: 20120918
  35. TAXOTERE [Concomitant]
     Active Substance: DOCETAXEL
     Indication: INVASIVE DUCTAL BREAST CARCINOMA
     Dosage: UNK, CYCLIC (6 CYCLES)
  36. LEVOFLOXACIN. [Concomitant]
     Active Substance: LEVOFLOXACIN
     Dosage: 500 MG, UNK
  37. DOCETAXEL. [Suspect]
     Active Substance: DOCETAXEL
     Dosage: 115 MG, SINGLE
     Dates: start: 20121030, end: 20121030
  38. PARAPLATIN [Concomitant]
     Active Substance: CARBOPLATIN
     Dosage: 590 MG, SINGLE
     Dates: start: 20120828, end: 20120828
  39. MELOXICAM. [Concomitant]
     Active Substance: MELOXICAM
     Dosage: 15 MG, UNK
     Dates: start: 20171205, end: 20180522
  40. ACETAMINOPHEN. [Concomitant]
     Active Substance: ACETAMINOPHEN
     Dosage: 500 MG
     Dates: start: 20110830, end: 20120730

REACTIONS (7)
  - Madarosis [Not Recovered/Not Resolved]
  - Anxiety disorder [Unknown]
  - Depression [Unknown]
  - Hair texture abnormal [Not Recovered/Not Resolved]
  - Hair disorder [Not Recovered/Not Resolved]
  - Alopecia [Not Recovered/Not Resolved]
  - Hair colour changes [Not Recovered/Not Resolved]

NARRATIVE: CASE EVENT DATE: 20130701
